FAERS Safety Report 23352652 (Version 1)
Quarter: 2023Q4

REPORT INFORMATION
  Report Type: Spontaneous
  Country: NL (occurrence: NL)
  Receive Date: 20231230
  Receipt Date: 20231230
  Transmission Date: 20240110
  Serious: Yes (Hospitalization, Other)
  Sender: FDA-Public Use
  Company Number: None

PATIENT
  Age: 61 Year
  Sex: Female

DRUGS (31)
  1. LEFLUNOMIDE [Suspect]
     Active Substance: LEFLUNOMIDE
     Indication: Rheumatoid arthritis
     Dosage: UNK
     Dates: start: 20231016
  2. HYDROXYCHLOROQUINE SULFATE [Suspect]
     Active Substance: HYDROXYCHLOROQUINE SULFATE
     Indication: Rheumatoid arthritis
     Dosage: UNK
     Dates: start: 20231016
  3. POLYETHYLENE GLYCOLS [Concomitant]
     Active Substance: POLYETHYLENE GLYCOLS
     Dosage: UNK
  4. CYCLOSPORINE [Concomitant]
     Active Substance: CYCLOSPORINE
     Dosage: UNK
  5. ACETAMINOPHEN [Concomitant]
     Active Substance: ACETAMINOPHEN
  6. FLUTICASONE [Concomitant]
     Active Substance: FLUTICASONE
  7. LOSARTAN [Concomitant]
     Active Substance: LOSARTAN
  8. OFLOXACIN [Concomitant]
     Active Substance: OFLOXACIN
  9. COSMETICS [Concomitant]
     Active Substance: COSMETICS
  10. NATRIUMFLUORIDE [Concomitant]
  11. MOMETASONE FUROATE [Concomitant]
     Active Substance: MOMETASONE FUROATE
  12. PREGABALIN [Concomitant]
     Active Substance: PREGABALIN
  13. ASPIRIN [Concomitant]
     Active Substance: ASPIRIN
  14. ALBUTEROL [Concomitant]
     Active Substance: ALBUTEROL
  15. ATORVASTATIN [Concomitant]
     Active Substance: ATORVASTATIN
  16. ACETYLCYSTEINE [Concomitant]
     Active Substance: ACETYLCYSTEINE
  17. NATRIUMFLUORIDE [Concomitant]
  18. NEXIUM I.V. [Concomitant]
     Active Substance: ESOMEPRAZOLE SODIUM
  19. CARBOXYPOLYMETHYLENE\HYALURONATE SODIUM [Concomitant]
     Active Substance: CARBOXYPOLYMETHYLENE\HYALURONATE SODIUM
  20. AMITRIPTYLINE HYDROCHLORIDE [Concomitant]
     Active Substance: AMITRIPTYLINE HYDROCHLORIDE
  21. DIAZEPAM [Concomitant]
     Active Substance: DIAZEPAM
  22. BISOPROLOL FUMARATE [Concomitant]
     Active Substance: BISOPROLOL FUMARATE
  23. FERROUS GLUCONATE [Concomitant]
     Active Substance: FERROUS GLUCONATE
  24. NAPROXEN [Concomitant]
     Active Substance: NAPROXEN
  25. FLUTICASONE PROPIONATE [Concomitant]
     Active Substance: FLUTICASONE PROPIONATE
  26. COLECALCIFEROL BENFEROL [Concomitant]
  27. LEVOTHYROXINE SODIUM [Concomitant]
     Active Substance: LEVOTHYROXINE SODIUM
  28. TRIAMCINOLONE ACETONIDE [Concomitant]
     Active Substance: TRIAMCINOLONE ACETONIDE
  29. BUTRANS [Concomitant]
     Active Substance: BUPRENORPHINE
  30. NITROGLYCERIN [Concomitant]
     Active Substance: NITROGLYCERIN
  31. EZETIMIBE [Concomitant]
     Active Substance: EZETIMIBE

REACTIONS (1)
  - Pneumococcal sepsis [Recovered/Resolved]

NARRATIVE: CASE EVENT DATE: 20231120
